FAERS Safety Report 9853676 (Version 1)
Quarter: 2014Q1

REPORT INFORMATION
  Report Type: Spontaneous
  Country: IQ (occurrence: IQ)
  Receive Date: 20140129
  Receipt Date: 20140129
  Transmission Date: 20141002
  Serious: Yes (Death, Hospitalization, Other)
  Sender: FDA-Public Use
  Company Number: IQ-ROXANE LABORATORIES, INC.-2014-RO-00097RO

PATIENT
  Age: 60 Year
  Sex: Female

DRUGS (5)
  1. CLOPIDOGREL [Suspect]
     Indication: ANTIPLATELET THERAPY
  2. ASPIRIN [Suspect]
     Indication: ANTIPLATELET THERAPY
     Route: 048
  3. ENALAPRIL [Concomitant]
     Indication: HYPERTENSION
     Route: 048
  4. METOPROLOL [Concomitant]
     Indication: HYPERTENSION
     Route: 048
  5. ATORVASTATIN [Concomitant]

REACTIONS (5)
  - Death [Fatal]
  - Thalamus haemorrhage [Unknown]
  - Quadriparesis [Unknown]
  - Dysphagia [Unknown]
  - Left ventricular hypertrophy [Unknown]
